FAERS Safety Report 4628084-6 (Version None)
Quarter: 2005Q2

REPORT INFORMATION
  Report Type: 
  Country: None (occurrence: None)
  Receive Date: 20050401
  Receipt Date: 20050322
  Transmission Date: 20051028
  Serious: Yes (Hospitalization, Other)
  Sender: FDA-Public Use
  Company Number: 05-03-0488

PATIENT
  Age: 59 Year
  Sex: Male

DRUGS (5)
  1. METFORMIN HCL [Suspect]
     Indication: DIABETES MELLITUS NON-INSULIN-DEPENDENT
     Dosage: SEE IMAGE, ORAL
     Route: 048
     Dates: end: 20050307
  2. INDOMETHACIN [Concomitant]
  3. FLUCLOXACILLIN [Concomitant]
  4. BENZYLPENICILLIN [Concomitant]
  5. GLICLAZIDE [Concomitant]

REACTIONS (4)
  - BODY TEMPERATURE DECREASED [None]
  - DYSARTHRIA [None]
  - TOE AMPUTATION [None]
  - WOUND INFECTION [None]
